FAERS Safety Report 4324932-8 (Version None)
Quarter: 2004Q1

REPORT INFORMATION
  Report Type: 
  Country: None (occurrence: None)
  Receive Date: 20040323
  Receipt Date: 20030225
  Transmission Date: 20041129
  Serious: Yes (Other)
  Sender: FDA-Public Use
  Company Number: 2003008504

PATIENT
  Age: 44 Year
  Sex: Female

DRUGS (2)
  1. GEMFIBROZIL [Suspect]
     Indication: ILL-DEFINED DISORDER
     Dosage: 900 MG (DAILY), UNKNOWN
  2. LOVASTATIN [Suspect]
     Indication: ILL-DEFINED DISORDER
     Dosage: 40 MG (DAILY), UNKNOWN

REACTIONS (1)
  - RHABDOMYOLYSIS [None]
